FAERS Safety Report 23479099 (Version 1)
Quarter: 2024Q1

REPORT INFORMATION
  Report Type: Report from Study
  Country: CA (occurrence: CA)
  Receive Date: 20240205
  Receipt Date: 20240205
  Transmission Date: 20240410
  Serious: Yes (Death, Hospitalization, Other)
  Sender: FDA-Public Use
  Company Number: CA-ABBVIE-5584665

PATIENT
  Sex: Male

DRUGS (1)
  1. VENCLEXTA [Suspect]
     Active Substance: VENETOCLAX
     Indication: Plasma cell myeloma
     Route: 048
     Dates: start: 20231215

REACTIONS (12)
  - Febrile neutropenia [Fatal]
  - Primary ciliary dyskinesia [Unknown]
  - Off label use [Unknown]
  - Confusional state [Unknown]
  - SARS-CoV-2 test positive [Fatal]
  - Tachycardia [Unknown]
  - Human metapneumovirus test positive [Fatal]
  - Subarachnoid haemorrhage [Unknown]
  - Splenomegaly [Unknown]
  - Splenic infarction [Unknown]
  - Hypoxia [Unknown]
  - General physical health deterioration [Fatal]
